FAERS Safety Report 4516428-5 (Version None)
Quarter: 2004Q4

REPORT INFORMATION
  Report Type: 
  Country: None (occurrence: None)
  Receive Date: 20041202
  Receipt Date: 20040609
  Transmission Date: 20050328
  Serious: No
  Sender: FDA-Public Use
  Company Number: US-GLAXOSMITHKLINE-A0513958A

PATIENT
  Age: 65 Year
  Sex: Female

DRUGS (8)
  1. AUGMENTIN '125' [Suspect]
     Indication: SINUSITIS
     Dosage: 2G TWICE PER DAY
     Route: 048
     Dates: start: 20040607
  2. NORTRIPTYLINE HCL [Concomitant]
  3. XANAX [Concomitant]
  4. PREVACID [Concomitant]
  5. OESTROGEN PATCHES [Concomitant]
  6. DIGOXIN [Concomitant]
  7. CLARITIN [Concomitant]
  8. ATENOLOL [Concomitant]

REACTIONS (4)
  - FATIGUE [None]
  - FLATULENCE [None]
  - NAUSEA [None]
  - STOMACH DISCOMFORT [None]
